FAERS Safety Report 18396332 (Version 1)
Quarter: 2020Q4

REPORT INFORMATION
  Report Type: Spontaneous
  Country: DE (occurrence: DE)
  Receive Date: 20201019
  Receipt Date: 20201019
  Transmission Date: 20210114
  Serious: Yes (Death, Hospitalization)
  Sender: FDA-Public Use
  Company Number: DE-TEVA-2020-DE-1837587

PATIENT
  Age: 96 Year
  Sex: Female

DRUGS (3)
  1. RAMIPRIL. [Suspect]
     Active Substance: RAMIPRIL
     Indication: HYPERTENSION
     Dosage: 2.5 MG
     Route: 048
  2. RAMIPRIL. [Suspect]
     Active Substance: RAMIPRIL
     Dosage: 5 MG
     Route: 048
     Dates: end: 20200729
  3. TORASEMID [Concomitant]
     Active Substance: TORSEMIDE
     Indication: OEDEMA
     Dosage: 10 MG

REACTIONS (5)
  - Delirium [Fatal]
  - Fall [Recovered/Resolved]
  - Taste disorder [Unknown]
  - Clavicle fracture [Unknown]
  - Glossitis [Unknown]

NARRATIVE: CASE EVENT DATE: 202007
